FAERS Safety Report 9261900 (Version 1)
Quarter: 2013Q2

REPORT INFORMATION
  Report Type: Report from Study
  Country: TW (occurrence: TW)
  Receive Date: 20130429
  Receipt Date: 20130429
  Transmission Date: 20140414
  Serious: No
  Sender: FDA-Public Use
  Company Number: PHHY2013TW042289

PATIENT
  Age: 57 Year
  Sex: Male

DRUGS (8)
  1. AMN107 [Suspect]
     Dosage: UNK
  2. BETAMETHASONE [Concomitant]
     Indication: FOLLICULITIS
     Dosage: UNK
     Dates: start: 20120328, end: 20120731
  3. GENTAMICIN [Concomitant]
     Indication: FOLLICULITIS
     Dosage: UNK
     Dates: start: 20120328, end: 20120731
  4. POLYTAR LIQUID [Concomitant]
     Indication: FOLLICULITIS
     Dosage: UNK
     Dates: start: 20120328, end: 20120731
  5. PASCA [Concomitant]
     Indication: RASH PUSTULAR
     Dosage: UNK
     Dates: start: 20120328, end: 20120731
  6. CLOBETASOL PROPIONATE [Concomitant]
     Indication: FOLLICULITIS
     Dosage: UNK
     Dates: start: 20120801
  7. BENZOYL PEROXIDE [Concomitant]
     Indication: FOLLICULITIS
     Dosage: UNK
     Dates: start: 20120801
  8. DOXYCYCLINE [Concomitant]
     Indication: RASH PUSTULAR
     Dosage: UNK
     Dates: start: 20120801

REACTIONS (1)
  - Diarrhoea [Unknown]
